FAERS Safety Report 8493807-5 (Version None)
Quarter: 2012Q3

REPORT INFORMATION
  Report Type: 
  Country: None (occurrence: None)
  Receive Date: 20120706
  Receipt Date: 20120627
  Transmission Date: 20120928
  Serious: Yes (Hospitalization)
  Sender: FDA-Public Use
  Company Number: US-BAXTER-2012BAX008360

PATIENT
  Sex: Female
  Weight: 80.812 kg

DRUGS (24)
  1. GAMMAGARD LIQUID [Suspect]
     Route: 042
     Dates: start: 20120607, end: 20120607
  2. GAMMAGARD LIQUID [Suspect]
     Route: 042
     Dates: start: 20120527, end: 20120530
  3. SOLU-MEDROL [Concomitant]
     Route: 042
     Dates: start: 20120530
  4. DIPHENHYDRAMINE HCL [Concomitant]
     Route: 042
     Dates: start: 20120530
  5. ZOLOFT [Concomitant]
     Route: 048
     Dates: start: 20120228
  6. ASCORBIC ACID [Concomitant]
     Route: 048
     Dates: start: 20120228
  7. BUPROPION HCL [Concomitant]
     Route: 048
     Dates: start: 20120228
  8. CLONAZEPAM [Concomitant]
     Route: 048
     Dates: start: 20120228
  9. TOPAMAX [Concomitant]
     Route: 048
     Dates: start: 20120228
  10. TEMAZEPAM [Concomitant]
     Route: 048
     Dates: start: 20120228
  11. MULTI-VITAMIN [Concomitant]
     Route: 048
     Dates: start: 20120228
  12. ACETAMINOPHEN [Concomitant]
     Route: 048
  13. ENALAPRIL MALEATE [Concomitant]
     Route: 048
     Dates: start: 20120228
  14. NORCO [Concomitant]
     Dosage: 10-325 MG
     Route: 048
     Dates: start: 20120228
  15. SINGULAIR [Concomitant]
     Route: 048
     Dates: start: 20120228
  16. BENADRYL [Concomitant]
     Route: 048
     Dates: start: 20120228
  17. VENTOLIN HFA [Concomitant]
     Dosage: 108 (90 BASE)
     Route: 045
     Dates: start: 20120228
  18. DIPHENHYDRAMINE HCL [Concomitant]
     Route: 048
     Dates: start: 20120228
  19. LYRICA [Concomitant]
     Route: 048
     Dates: start: 20120228
  20. GAMMAGARD LIQUID [Suspect]
     Route: 042
     Dates: start: 20120217
  21. ASPIRIN [Concomitant]
     Route: 048
     Dates: start: 20120228
  22. LOVASTATIN [Concomitant]
     Route: 048
     Dates: start: 20120228
  23. CALCIUM CHLORIDE, DIHYDRATE; POTASSIUM CHLORIDE; SODIUM CHLORIDE_CALCI [Concomitant]
     Dosage: 1200-1000
     Route: 048
     Dates: start: 20120228
  24. VITAMIN B-12 [Concomitant]
     Route: 048
     Dates: start: 20120228

REACTIONS (8)
  - RASH [None]
  - BLOOD PRESSURE INCREASED [None]
  - CHEST PAIN [None]
  - ASTHMA [None]
  - PARAESTHESIA [None]
  - PRURITUS [None]
  - OEDEMA PERIPHERAL [None]
  - THROAT IRRITATION [None]
